FAERS Safety Report 19072628 (Version 2)
Quarter: 2024Q1

REPORT INFORMATION
  Report Type: Spontaneous
  Country: US (occurrence: US)
  Receive Date: 20210330
  Receipt Date: 20240313
  Transmission Date: 20240410
  Serious: No
  Sender: FDA-Public Use
  Company Number: US-SA-SAC20210326000273

PATIENT
  Sex: Female

DRUGS (2)
  1. DUPIXENT [Suspect]
     Active Substance: DUPILUMAB
     Indication: Dermatitis allergic
     Dosage: 300 MG, QOW
     Route: 058
  2. DUPIXENT [Suspect]
     Active Substance: DUPILUMAB
     Indication: Dermatitis atopic

REACTIONS (11)
  - Fear of injection [Unknown]
  - Fungal infection [Unknown]
  - Rash pruritic [Unknown]
  - Chest discomfort [Unknown]
  - Asthma [Unknown]
  - Rash [Unknown]
  - Eczema [Unknown]
  - Injection site pain [Unknown]
  - Injection site bruising [Unknown]
  - Dermatitis atopic [Unknown]
  - Inappropriate schedule of product administration [Unknown]
